FAERS Safety Report 6833357-2 (Version None)
Quarter: 2010Q3

REPORT INFORMATION
  Report Type: 
  Country: None (occurrence: None)
  Receive Date: 20100712
  Receipt Date: 20070322
  Transmission Date: 20110219
  Serious: No
  Sender: FDA-Public Use
  Company Number: US-PFIZER INC-2007025247

PATIENT
  Sex: Female
  Weight: 68.04 kg

DRUGS (4)
  1. CHANTIX [Suspect]
     Indication: SMOKING CESSATION THERAPY
     Dates: start: 20070312, end: 20070313
  2. PREMARIN [Concomitant]
  3. THYROID TAB [Concomitant]
     Indication: THYROID DISORDER
  4. ANTIHYPERTENSIVES [Concomitant]
     Indication: BLOOD PRESSURE

REACTIONS (1)
  - HEART RATE INCREASED [None]
